FAERS Safety Report 5446486-5 (Version None)
Quarter: 2007Q3

REPORT INFORMATION
  Report Type: 
  Country: None (occurrence: None)
  Receive Date: 20070907
  Receipt Date: 20070904
  Transmission Date: 20080115
  Serious: Yes (Hospitalization)
  Sender: FDA-Public Use
  Company Number: GR-JNJFOC-20070806506

PATIENT
  Age: 45 Year
  Sex: Male

DRUGS (3)
  1. PARACETAMOL [Suspect]
  2. PARACETAMOL [Suspect]
     Indication: DRUG USE FOR UNKNOWN INDICATION
     Dosage: 10,000MG PER DAY, X 2 MONTHS
  3. ALCOHOL [Interacting]
     Indication: DRUG USE FOR UNKNOWN INDICATION

REACTIONS (6)
  - DRUG INTERACTION [None]
  - HEPATIC FAILURE [None]
  - HYPERCOAGULATION [None]
  - INAPPROPRIATE SCHEDULE OF DRUG ADMINISTRATION [None]
  - INTENTIONAL OVERDOSE [None]
  - PERIPHERAL ISCHAEMIA [None]
